FAERS Safety Report 20545572 (Version 1)
Quarter: 2022Q1

REPORT INFORMATION
  Report Type: Spontaneous
  Country: FR (occurrence: FR)
  Receive Date: 20220303
  Receipt Date: 20220303
  Transmission Date: 20220424
  Serious: Yes (Hospitalization)
  Sender: FDA-Public Use
  Company Number: None

PATIENT
  Age: 17 Year
  Sex: Male
  Weight: 79 kg

DRUGS (5)
  1. ACYCLOVIR [Suspect]
     Active Substance: ACYCLOVIR
     Indication: Prophylaxis
     Dosage: UNK
     Route: 065
  2. AMOXICILLIN [Suspect]
     Active Substance: AMOXICILLIN
     Indication: Prophylaxis
     Dosage: UNK
     Route: 065
  3. RISPERDAL [Suspect]
     Active Substance: RISPERIDONE
     Indication: Delirium
     Dosage: 2 MG, QD (STRENGTH 1 MG/ML)
     Route: 048
     Dates: start: 20190821, end: 20190829
  4. CYAMEMAZINE [Suspect]
     Active Substance: CYAMEMAZINE
     Indication: Agitation
     Dosage: 50 MG, QD (STRENGTH 40 MG/ML)
     Route: 048
     Dates: start: 20190808, end: 20190829
  5. CEFTRIAXONE SODIUM [Suspect]
     Active Substance: CEFTRIAXONE SODIUM
     Indication: Prophylaxis
     Dosage: 2 G, QD
     Route: 042

REACTIONS (1)
  - Hepatic cytolysis [Not Recovered/Not Resolved]

NARRATIVE: CASE EVENT DATE: 20190823
